FAERS Safety Report 24838864 (Version 3)
Quarter: 2025Q3

REPORT INFORMATION
  Report Type: Spontaneous
  Country: US (occurrence: US)
  Receive Date: 20250114
  Receipt Date: 20250810
  Transmission Date: 20251021
  Serious: No
  Sender: ALEXION PHARMACEUTICALS
  Company Number: US-AstraZeneca-CH-00779915AP

PATIENT
  Sex: Female

DRUGS (2)
  1. BYDUREON BCISE [Suspect]
     Active Substance: EXENATIDE
     Route: 065
  2. BYDUREON [Suspect]
     Active Substance: EXENATIDE
     Route: 065

REACTIONS (6)
  - Incorrect dose administered [Unknown]
  - Injection site haemorrhage [Unknown]
  - Device delivery system issue [Unknown]
  - Blood glucose increased [Unknown]
  - Product dose omission issue [Unknown]
  - Hepatic function abnormal [Unknown]
